FAERS Safety Report 22235705 (Version 1)
Quarter: 2023Q2

REPORT INFORMATION
  Report Type: Spontaneous
  Country: FR (occurrence: FR)
  Receive Date: 20230420
  Receipt Date: 20230420
  Transmission Date: 20230721
  Serious: Yes (Death, Hospitalization)
  Sender: FDA-Public Use
  Company Number: None

PATIENT
  Age: 43 Year
  Sex: Male
  Weight: 97 kg

DRUGS (2)
  1. IBUPROFEN [Suspect]
     Active Substance: IBUPROFEN
     Indication: Influenza like illness
     Dosage: UNK
     Route: 048
     Dates: start: 20230227
  2. ASPIRIN [Suspect]
     Active Substance: ASPIRIN
     Indication: Influenza like illness
     Dosage: UNK
     Route: 048
     Dates: start: 20230227

REACTIONS (1)
  - Septic shock [Fatal]

NARRATIVE: CASE EVENT DATE: 20230305
